FAERS Safety Report 7439043-2 (Version None)
Quarter: 2011Q2

REPORT INFORMATION
  Report Type: 
  Country: None (occurrence: None)
  Receive Date: 20110427
  Receipt Date: 20110418
  Transmission Date: 20111010
  Serious: Yes (Hospitalization)
  Sender: FDA-Public Use
  Company Number: US-BIOGENIDEC-2011BI014818

PATIENT
  Age: 43 Year
  Sex: Female

DRUGS (2)
  1. AVONEX [Suspect]
     Indication: MULTIPLE SCLEROSIS
     Route: 030
     Dates: start: 20110331
  2. LISINOPRIL [Concomitant]
     Indication: DIABETES MELLITUS

REACTIONS (8)
  - FALL [None]
  - PAIN IN EXTREMITY [None]
  - BLOOD GLUCOSE ABNORMAL [None]
  - DIZZINESS [None]
  - MUSCULAR WEAKNESS [None]
  - VOMITING [None]
  - BACK PAIN [None]
  - URINARY INCONTINENCE [None]
